FAERS Safety Report 20765765 (Version 6)
Quarter: 2022Q4

REPORT INFORMATION
  Report Type: Spontaneous
  Country: US (occurrence: US)
  Receive Date: 20220428
  Receipt Date: 20221215
  Transmission Date: 20230113
  Serious: No
  Sender: FDA-Public Use
  Company Number: US-PFIZER INC-2021230005

PATIENT
  Age: 81 Year
  Sex: Female

DRUGS (2)
  1. IBRANCE [Suspect]
     Active Substance: PALBOCICLIB
     Indication: Breast cancer stage IV
     Dosage: 3X7 UD TAB 21
  2. ANASTROZOLE [Concomitant]
     Active Substance: ANASTROZOLE
     Indication: Breast cancer stage IV
     Dosage: COMPLETED 28 CYCLES

REACTIONS (5)
  - Lymphadenopathy [Unknown]
  - Fatigue [Unknown]
  - Muscle disorder [Unknown]
  - Anaemia [Unknown]
  - Intentional product misuse [Unknown]
